FAERS Safety Report 24063318 (Version 2)
Quarter: 2024Q3

REPORT INFORMATION
  Report Type: Spontaneous
  Country: JP (occurrence: JP)
  Receive Date: 20240709
  Receipt Date: 20240730
  Transmission Date: 20241016
  Serious: Yes (Other)
  Sender: SANOFI AVENTIS
  Company Number: JP-SA-2024SA193933

PATIENT
  Age: 50 Year
  Sex: Male

DRUGS (1)
  1. DUPIXENT [Suspect]
     Active Substance: DUPILUMAB
     Indication: Chronic eosinophilic rhinosinusitis
     Dosage: UNK
     Route: 058

REACTIONS (11)
  - Scleritis [Recovered/Resolved]
  - Cellulitis orbital [Recovered/Resolved]
  - Swelling of eyelid [Recovered/Resolved]
  - Conjunctival oedema [Recovered/Resolved]
  - Eosinophilic granulomatosis with polyangiitis [Unknown]
  - Urticaria [Unknown]
  - Abdominal pain [Unknown]
  - Vomiting [Unknown]
  - Respiratory tract inflammation [Unknown]
  - Gastroenteritis eosinophilic [Unknown]
  - Eosinophilic oesophagitis [Unknown]
